FAERS Safety Report 16008789 (Version 7)
Quarter: 2019Q2

REPORT INFORMATION
  Report Type: Report from Study
  Country: CA (occurrence: CA)
  Receive Date: 20190225
  Receipt Date: 20190531
  Transmission Date: 20190711
  Serious: Yes (Hospitalization, Other)
  Sender: FDA-Public Use
  Company Number: CA-BRISTOL-MYERS SQUIBB COMPANY-BMS-2019-013408

PATIENT
  Age: 64 Year
  Sex: Female

DRUGS (4)
  1. NIVOLUMAB [Suspect]
     Active Substance: NIVOLUMAB
     Indication: PRODUCT USED FOR UNKNOWN INDICATION
     Dosage: 189 MILLIGRAM, Q3WK
     Route: 042
     Dates: start: 20190311
  2. YERVOY [Suspect]
     Active Substance: IPILIMUMAB
     Indication: RENAL CELL CARCINOMA
     Dosage: 63 MILLIGRAM, Q3WK
     Route: 042
     Dates: start: 20190124
  3. YERVOY [Suspect]
     Active Substance: IPILIMUMAB
     Indication: PRODUCT USED FOR UNKNOWN INDICATION
     Dosage: 63 MILLIGRAM, Q3WK
     Route: 042
     Dates: start: 20190311
  4. NIVOLUMAB [Suspect]
     Active Substance: NIVOLUMAB
     Indication: RENAL CELL CARCINOMA
     Dosage: 198 MILLIGRAM, Q2WK
     Route: 042
     Dates: start: 20190124

REACTIONS (21)
  - Sensation of foreign body [Unknown]
  - Swelling of eyelid [Unknown]
  - Haematuria [Recovered/Resolved]
  - Nausea [Recovering/Resolving]
  - Oropharyngeal pain [Recovered/Resolved]
  - Rash [Recovering/Resolving]
  - Pain [Unknown]
  - Dyspnoea [Unknown]
  - Respiratory tract congestion [Unknown]
  - Rash macular [Unknown]
  - Kidney infection [Recovering/Resolving]
  - Abdominal pain [Unknown]
  - Oral pain [Unknown]
  - Pruritus [Recovering/Resolving]
  - Fatigue [Unknown]
  - Back pain [Unknown]
  - Headache [Unknown]
  - Skin disorder [Recovered/Resolved]
  - Lymphadenopathy [Unknown]
  - Flank pain [Recovering/Resolving]
  - Influenza [Unknown]

NARRATIVE: CASE EVENT DATE: 20190205
